FAERS Safety Report 14106500 (Version 1)
Quarter: 2017Q4

REPORT INFORMATION
  Report Type: Spontaneous
  Country: US (occurrence: US)
  Receive Date: 20171018
  Receipt Date: 20171018
  Transmission Date: 20180321
  Serious: Yes (Hospitalization, Other)
  Sender: FDA-Public Use
  Company Number: US-AMGEN-USASP2017060204

PATIENT
  Age: 80 Year
  Sex: Female

DRUGS (8)
  1. CIPRO [Concomitant]
     Active Substance: CIPROFLOXACIN HYDROCHLORIDE
     Indication: DIVERTICULITIS
     Dosage: UNK
  2. PROLIA [Suspect]
     Active Substance: DENOSUMAB
     Indication: OSTEOPOROSIS POSTMENOPAUSAL
     Dosage: 60 MG, Q6MO
     Route: 065
  3. ASPIRIN. [Concomitant]
     Active Substance: ASPIRIN
     Dosage: 81 MG, UNK
  4. CALCIUM + D3 [Concomitant]
     Active Substance: CALCIUM\CHOLECALCIFEROL
     Dosage: UNK
  5. LEVOTHYROXINE. [Concomitant]
     Active Substance: LEVOTHYROXINE
     Dosage: 112 MG, UNK
  6. TORSEMIDE. [Concomitant]
     Active Substance: TORSEMIDE
     Indication: PERIPHERAL VENOUS DISEASE
     Dosage: UNK
  7. IRBESARTAN. [Concomitant]
     Active Substance: IRBESARTAN
     Indication: HYPERTENSION
     Dosage: UNK
  8. METOPROLOL. [Concomitant]
     Active Substance: METOPROLOL
     Indication: HYPERTENSION
     Dosage: UNK

REACTIONS (3)
  - Headache [Not Recovered/Not Resolved]
  - Atrial fibrillation [Unknown]
  - Dental caries [Not Recovered/Not Resolved]

NARRATIVE: CASE EVENT DATE: 201612
